FAERS Safety Report 6370280-4 (Version None)
Quarter: 2009Q3

REPORT INFORMATION
  Report Type: 
  Country: None (occurrence: None)
  Receive Date: 20090918
  Receipt Date: 20090909
  Transmission Date: 20100115
  Serious: Yes (Other)
  Sender: FDA-Public Use
  Company Number: CHPA2009US17668

PATIENT
  Age: 26 Year
  Sex: Female
  Weight: 63.5 kg

DRUGS (1)
  1. EXCEDRIN (MIGRAINE) [Suspect]
     Indication: MIGRAINE
     Dosage: 2 DF, TID, ORAL
     Route: 048
     Dates: end: 20090823

REACTIONS (4)
  - DEAFNESS [None]
  - INTENTIONAL DRUG MISUSE [None]
  - TABLET ISSUE [None]
  - VISUAL ACUITY REDUCED [None]
